FAERS Safety Report 5748857-6 (Version None)
Quarter: 2008Q2

REPORT INFORMATION
  Report Type: 
  Country: None (occurrence: None)
  Receive Date: 20080522
  Receipt Date: 20080505
  Transmission Date: 20081010
  Serious: Yes (Hospitalization)
  Sender: FDA-Public Use
  Company Number: 2008AL003611

PATIENT
  Age: 66 Year
  Sex: Female

DRUGS (3)
  1. DIGOXIN [Suspect]
     Indication: ATRIAL FIBRILLATION
     Dosage: 0.25 MG PO QDAY
     Route: 048
  2. INSULIN (NOVALOG AND LANTUS) [Concomitant]
  3. FUROSEMIDE [Concomitant]

REACTIONS (6)
  - ABDOMINAL PAIN UPPER [None]
  - DIZZINESS [None]
  - FATIGUE [None]
  - PALPITATIONS [None]
  - SYNCOPE [None]
  - THERAPEUTIC AGENT TOXICITY [None]
